FAERS Safety Report 22345189 (Version 1)
Quarter: 2023Q2

REPORT INFORMATION
  Report Type: Spontaneous
  Country: US (occurrence: US)
  Receive Date: 20230519
  Receipt Date: 20230519
  Transmission Date: 20230722
  Serious: Yes (Other)
  Sender: FDA-Public Use
  Company Number: US-AMGEN-USASP2023085378

PATIENT
  Age: 55 Year

DRUGS (1)
  1. OTEZLA [Suspect]
     Active Substance: APREMILAST
     Indication: Psoriatic arthropathy
     Dosage: UNK, UNK
     Route: 065

REACTIONS (9)
  - Neuropathy peripheral [Unknown]
  - Angina pectoris [Unknown]
  - Psoriatic arthropathy [Unknown]
  - Drug ineffective [Unknown]
  - Coronary artery disease [Unknown]
  - Pelvic pain [Unknown]
  - Alopecia [Recovered/Resolved]
  - Cushingoid [Recovered/Resolved]
  - Giant cell arteritis [Unknown]

NARRATIVE: CASE EVENT DATE: 20200101
